FAERS Safety Report 24071660 (Version 1)
Quarter: 2024Q3

REPORT INFORMATION
  Report Type: Report from Study
  Country: US (occurrence: US)
  Receive Date: 20240710
  Receipt Date: 20240710
  Transmission Date: 20241016
  Serious: No
  Sender: ROCHE
  Company Number: US-ROCHE-3562725

PATIENT
  Age: 57 Year
  Sex: Female
  Weight: 58.51 kg

DRUGS (8)
  1. ALECENSA [Suspect]
     Active Substance: ALECTINIB HYDROCHLORIDE
     Indication: Lung neoplasm malignant
     Dosage: LAST DOSE 10/MAY/2024
     Route: 048
     Dates: start: 202204
  2. ALECENSA [Suspect]
     Active Substance: ALECTINIB HYDROCHLORIDE
     Indication: Lung carcinoma cell type unspecified stage IV
  3. LISINOPRIL [Concomitant]
     Active Substance: LISINOPRIL
     Indication: Hypertension
  4. CALTRATE +D3 [Concomitant]
  5. CASANTHRANOL\DOCUSATE SODIUM [Concomitant]
     Active Substance: CASANTHRANOL\DOCUSATE SODIUM
  6. BIOTIN [Concomitant]
     Active Substance: BIOTIN
  7. ZINC [Concomitant]
     Active Substance: ZINC
  8. HERBALS\TURMERIC [Concomitant]
     Active Substance: HERBALS\TURMERIC

REACTIONS (2)
  - Erythema [Not Recovered/Not Resolved]
  - Product label issue [Unknown]
